FAERS Safety Report 15004505 (Version 3)
Quarter: 2020Q2

REPORT INFORMATION
  Report Type: Report from Study
  Country: US (occurrence: US)
  Receive Date: 20180613
  Receipt Date: 20200618
  Transmission Date: 20200713
  Serious: Yes (Other)
  Sender: FDA-Public Use
  Company Number: US-ROCHE-2135305

PATIENT
  Age: 58 Year
  Sex: Female
  Weight: 51.76 kg

DRUGS (8)
  1. PRAVASTATIN. [Concomitant]
     Active Substance: PRAVASTATIN
  2. COQ 10 [Concomitant]
     Active Substance: UBIDECARENONE
  3. OCREVUS [Suspect]
     Active Substance: OCRELIZUMAB
     Dosage: DAY 1 AND DAY 15
     Route: 042
  4. OCREVUS [Suspect]
     Active Substance: OCRELIZUMAB
     Route: 042
     Dates: start: 20180731
  5. OCREVUS [Suspect]
     Active Substance: OCRELIZUMAB
     Route: 042
     Dates: start: 20170808
  6. OCREVUS [Suspect]
     Active Substance: OCRELIZUMAB
     Indication: MULTIPLE SCLEROSIS
     Route: 042
     Dates: start: 20170722
  7. PROLIA [Concomitant]
     Active Substance: DENOSUMAB
  8. ZETIA [Concomitant]
     Active Substance: EZETIMIBE

REACTIONS (27)
  - Spinal cord compression [Not Recovered/Not Resolved]
  - Productive cough [Not Recovered/Not Resolved]
  - Somnolence [Recovered/Resolved]
  - Nasopharyngitis [Recovered/Resolved]
  - Hip fracture [Recovered/Resolved]
  - Visual impairment [Not Recovered/Not Resolved]
  - Weight increased [Unknown]
  - Urinary tract infection [Unknown]
  - General physical health deterioration [Unknown]
  - Throat irritation [Recovered/Resolved]
  - Dizziness [Recovering/Resolving]
  - Diplopia [Not Recovered/Not Resolved]
  - Upper limb fracture [Recovered/Resolved]
  - Sleep disorder [Recovered/Resolved]
  - Pyrexia [Recovered/Resolved]
  - Fall [Unknown]
  - Central nervous system lesion [Unknown]
  - Multiple sclerosis [Not Recovered/Not Resolved]
  - Fatigue [Not Recovered/Not Resolved]
  - Osteoporosis [Not Recovered/Not Resolved]
  - Infusion related reaction [Unknown]
  - Body height decreased [Unknown]
  - Eye movement disorder [Not Recovered/Not Resolved]
  - Influenza like illness [Recovered/Resolved]
  - Drug ineffective [Unknown]
  - Fatigue [Recovering/Resolving]
  - Balance disorder [Not Recovered/Not Resolved]

NARRATIVE: CASE EVENT DATE: 20170722
